FAERS Safety Report 6502109-5 (Version None)
Quarter: 2009Q4

REPORT INFORMATION
  Report Type: 
  Country: None (occurrence: None)
  Receive Date: 20091214
  Receipt Date: 20091202
  Transmission Date: 20100525
  Serious: Yes (Hospitalization)
  Sender: FDA-Public Use
  Company Number: 1000010480

PATIENT
  Age: 38 Year
  Sex: Female

DRUGS (4)
  1. PROPRANOLOL HYDROCHLORIDE [Suspect]
  2. CARBAMAZEPINE [Suspect]
  3. MEPROBAMATE [Suspect]
  4. HYDROXYZINE [Suspect]

REACTIONS (3)
  - CARDIAC FAILURE [None]
  - INTESTINAL INFARCTION [None]
  - POISONING [None]
